FAERS Safety Report 9191033 (Version 2)
Quarter: 2013Q2

REPORT INFORMATION
  Report Type: Spontaneous
  Country: IT (occurrence: IT)
  Receive Date: 20130326
  Receipt Date: 20130402
  Transmission Date: 20140414
  Serious: Yes (Hospitalization)
  Sender: FDA-Public Use
  Company Number: IT-ASTRAZENECA-2013SE17801

PATIENT
  Age: 9731 Day
  Sex: Male

DRUGS (3)
  1. SEROQUEL [Suspect]
     Indication: INTENTIONAL SELF-INJURY
     Dosage: 300 MG, 4 DF ONCE/SINGLE ADMINISTRATION
     Route: 048
     Dates: start: 20130101, end: 20130101
  2. TAVOR [Suspect]
     Indication: INTENTIONAL SELF-INJURY
     Dosage: 2,5 MG, 6 DF DAILY
     Route: 048
     Dates: start: 20130101, end: 20130101
  3. NOZINAN [Suspect]
     Indication: INTENTIONAL SELF-INJURY
     Dosage: 25MG, 4DF ONCE/SINGLE ADMINISTRATION
     Route: 048
     Dates: start: 20130101, end: 20130101

REACTIONS (4)
  - Overdose [Recovered/Resolved]
  - Suicidal ideation [Recovered/Resolved]
  - Intentional self-injury [Unknown]
  - Confusional state [Recovered/Resolved]
